FAERS Safety Report 8611936 (Version 5)
Quarter: 2013Q1

REPORT INFORMATION
  Report Type: Spontaneous
  Country: US (occurrence: US)
  Receive Date: 20120613
  Receipt Date: 20130313
  Transmission Date: 20140127
  Serious: Yes (Other)
  Sender: FDA-Public Use
  Company Number: US-BRISTOL-MYERS SQUIBB COMPANY-16664518

PATIENT
  Age: 58 Year
  Sex: Female
  Weight: 80 kg

DRUGS (1)
  1. ORENCIA [Suspect]
     Indication: RHEUMATOID ARTHRITIS
     Dosage: NO OF INF:1?STARTED IN 04JUN2012?LAST INF ON 31JUL2012?LAST INF:25SEP12
     Route: 042
     Dates: start: 2005

REACTIONS (3)
  - Basal cell carcinoma [Unknown]
  - Wound [Unknown]
  - Drug ineffective [Unknown]
